FAERS Safety Report 15397565 (Version 2)
Quarter: 2018Q4

REPORT INFORMATION
  Report Type: Spontaneous
  Country: JP (occurrence: JP)
  Receive Date: 20180918
  Receipt Date: 20181010
  Transmission Date: 20190204
  Serious: Yes (Hospitalization)
  Sender: FDA-Public Use
  Company Number: JP-JNJFOC-20180912194

PATIENT
  Age: 54 Year
  Sex: Female
  Weight: 48.58 kg

DRUGS (8)
  1. DECADRON [Concomitant]
     Active Substance: DEXAMETHASONE
     Indication: PROPHYLAXIS OF NAUSEA AND VOMITING
     Route: 048
     Dates: start: 20160116, end: 20180619
  2. FILGRASTIM [Concomitant]
     Active Substance: FILGRASTIM
     Indication: NEUTROPHIL COUNT DECREASED
     Route: 058
     Dates: start: 20160126, end: 20180510
  3. METOCLOPRAMIDE. [Concomitant]
     Active Substance: METOCLOPRAMIDE
     Indication: NAUSEA
     Route: 041
     Dates: start: 20180714, end: 20180805
  4. DEXAMETHASONE. [Concomitant]
     Active Substance: DEXAMETHASONE
     Route: 065
     Dates: start: 20160115
  5. TEPRENONE [Concomitant]
     Active Substance: TEPRENONE
     Indication: PAIN
     Route: 048
     Dates: start: 20160219
  6. LEVOFLOXACIN. [Concomitant]
     Active Substance: LEVOFLOXACIN
     Indication: RENAL IMPAIRMENT
     Route: 048
     Dates: start: 20160219, end: 20180515
  7. YONDELIS [Suspect]
     Active Substance: TRABECTEDIN
     Indication: LIPOSARCOMA
     Route: 041
     Dates: start: 20160115, end: 20180706
  8. LOXOPROFEN [Concomitant]
     Active Substance: LOXOPROFEN
     Indication: PAIN
     Route: 048
     Dates: start: 20160219

REACTIONS (4)
  - Sputum increased [Unknown]
  - Rhabdomyolysis [Recovered/Resolved]
  - Febrile neutropenia [Recovering/Resolving]
  - Fistula of small intestine [Recovering/Resolving]

NARRATIVE: CASE EVENT DATE: 20180501
